FAERS Safety Report 9549500 (Version 1)
Quarter: 2013Q3

REPORT INFORMATION
  Report Type: Spontaneous
  Country: CN (occurrence: None)
  Receive Date: 20130919
  Receipt Date: 20130919
  Transmission Date: 20140515
  Serious: Yes (Death, Hospitalization)
  Sender: FDA-Public Use
  Company Number: 2013/184

PATIENT
  Age: 64 Year
  Sex: Male

DRUGS (1)
  1. CEFUROXIME SODIUM [Suspect]
     Indication: PRODUCTIVE COUGH
     Route: 042

REACTIONS (12)
  - Alcohol intolerance [None]
  - Flushing [None]
  - Hyperhidrosis [None]
  - Asthenia [None]
  - Dyspnoea [None]
  - Loss of consciousness [None]
  - Blood pressure decreased [None]
  - Heart rate increased [None]
  - Arteriosclerosis coronary artery [None]
  - Coronary artery stenosis [None]
  - Emphysema [None]
  - Drug interaction [None]
